FAERS Safety Report 5243467-1 (Version None)
Quarter: 2007Q1

REPORT INFORMATION
  Report Type: 
  Country: None (occurrence: None)
  Receive Date: 20070222
  Receipt Date: 20070207
  Transmission Date: 20070707
  Serious: Yes (Other)
  Sender: FDA-Public Use
  Company Number: PHHO2006IT21515

PATIENT
  Sex: Female

DRUGS (3)
  1. ZOLEDRONIC ACID [Suspect]
     Indication: METASTASES TO BONE
     Dosage: 4 MG, EVERY 3 MONTHS
     Route: 042
     Dates: start: 20060427, end: 20061215
  2. CALCIUM [Concomitant]
  3. VITAMIN D [Concomitant]

REACTIONS (11)
  - BONE LESION [None]
  - ERYTHEMA [None]
  - GINGIVAL INFECTION [None]
  - INFLAMMATION [None]
  - LOCAL SWELLING [None]
  - OSTEOMYELITIS [None]
  - OSTEONECROSIS [None]
  - PAIN [None]
  - SOFT TISSUE INFECTION [None]
  - SWELLING [None]
  - TENDERNESS [None]
